FAERS Safety Report 19660706 (Version 1)
Quarter: 2021Q3

REPORT INFORMATION
  Report Type: Spontaneous
  Country: US (occurrence: US)
  Receive Date: 20210805
  Receipt Date: 20210805
  Transmission Date: 20211014
  Serious: No
  Sender: FDA-Public Use
  Company Number: None

PATIENT
  Age: 62 Year
  Sex: Male

DRUGS (2)
  1. LITHIUM (LITHIUM CARBONATE 300MG CAP) [Suspect]
     Active Substance: LITHIUM CARBONATE
     Indication: BIPOLAR DISORDER
     Dates: start: 20210115
  2. LITHIUM (LITHIUM CARBONATE 300MG CAP) [Suspect]
     Active Substance: LITHIUM CARBONATE
     Indication: MANIA
     Dates: start: 20210115

REACTIONS (4)
  - Toxicity to various agents [None]
  - Diarrhoea [None]
  - Antipsychotic drug level increased [None]
  - Dialysis [None]

NARRATIVE: CASE EVENT DATE: 20210603
